FAERS Safety Report 5493254-4 (Version None)
Quarter: 2007Q4

REPORT INFORMATION
  Report Type: 
  Country: None (occurrence: None)
  Receive Date: 20071022
  Receipt Date: 20071022
  Transmission Date: 20080405
  Serious: Yes (Hospitalization)
  Sender: FDA-Public Use
  Company Number: None

PATIENT
  Sex: Male
  Weight: 81.5 kg

DRUGS (24)
  1. CYCLOPHOSPHEMIDE [Suspect]
     Indication: CHRONIC LYMPHOCYTIC LEUKAEMIA
     Dosage: 250 MG/M2 IV Q 4 WKSX6MOS IV
     Route: 042
     Dates: start: 20070718
  2. CYCLOPHOSPHEMIDE [Suspect]
     Indication: CHRONIC LYMPHOCYTIC LEUKAEMIA
     Dosage: 250 MG/M2 IV Q 4 WKSX6MOS IV
     Route: 042
     Dates: start: 20070719
  3. CYCLOPHOSPHEMIDE [Suspect]
     Indication: CHRONIC LYMPHOCYTIC LEUKAEMIA
     Dosage: 250 MG/M2 IV Q 4 WKSX6MOS IV
     Route: 042
     Dates: start: 20070720
  4. CYCLOPHOSPHEMIDE [Suspect]
     Indication: CHRONIC LYMPHOCYTIC LEUKAEMIA
     Dosage: 250 MG/M2 IV Q 4 WKSX6MOS IV
     Route: 042
     Dates: start: 20070813
  5. CYCLOPHOSPHEMIDE [Suspect]
     Indication: CHRONIC LYMPHOCYTIC LEUKAEMIA
     Dosage: 250 MG/M2 IV Q 4 WKSX6MOS IV
     Route: 042
     Dates: start: 20070814
  6. CYCLOPHOSPHEMIDE [Suspect]
     Indication: CHRONIC LYMPHOCYTIC LEUKAEMIA
     Dosage: 250 MG/M2 IV Q 4 WKSX6MOS IV
     Route: 042
     Dates: start: 20070815
  7. CYCLOPHOSPHEMIDE [Suspect]
     Indication: CHRONIC LYMPHOCYTIC LEUKAEMIA
     Dosage: 250 MG/M2 IV Q 4 WKSX6MOS IV
     Route: 042
     Dates: start: 20070912
  8. CYCLOPHOSPHEMIDE [Suspect]
     Indication: CHRONIC LYMPHOCYTIC LEUKAEMIA
     Dosage: 250 MG/M2 IV Q 4 WKSX6MOS IV
     Route: 042
     Dates: start: 20070913
  9. CYCLOPHOSPHEMIDE [Suspect]
     Indication: CHRONIC LYMPHOCYTIC LEUKAEMIA
     Dosage: 250 MG/M2 IV Q 4 WKSX6MOS IV
     Route: 042
     Dates: start: 20070914
  10. CYCLOPHOSPHEMIDE [Suspect]
     Indication: CHRONIC LYMPHOCYTIC LEUKAEMIA
     Dosage: 250 MG/M2 IV Q 4 WKSX6MOS IV
     Route: 042
     Dates: start: 20071010
  11. CYCLOPHOSPHEMIDE [Suspect]
     Indication: CHRONIC LYMPHOCYTIC LEUKAEMIA
     Dosage: 250 MG/M2 IV Q 4 WKSX6MOS IV
     Route: 042
     Dates: start: 20071011
  12. CYCLOPHOSPHEMIDE [Suspect]
     Indication: CHRONIC LYMPHOCYTIC LEUKAEMIA
     Dosage: 250 MG/M2 IV Q 4 WKSX6MOS IV
     Route: 042
     Dates: start: 20071012
  13. FLUDARABINE PHOSPHATE [Suspect]
     Indication: CHRONIC LYMPHOCYTIC LEUKAEMIA
     Dosage: 25MG/M2 IV Q 4 WKSX6MOS IV
     Route: 042
     Dates: start: 20070718
  14. FLUDARABINE PHOSPHATE [Suspect]
     Indication: CHRONIC LYMPHOCYTIC LEUKAEMIA
     Dosage: 25MG/M2 IV Q 4 WKSX6MOS IV
     Route: 042
     Dates: start: 20070719
  15. FLUDARABINE PHOSPHATE [Suspect]
     Indication: CHRONIC LYMPHOCYTIC LEUKAEMIA
     Dosage: 25MG/M2 IV Q 4 WKSX6MOS IV
     Route: 042
     Dates: start: 20070723
  16. FLUDARABINE PHOSPHATE [Suspect]
     Indication: CHRONIC LYMPHOCYTIC LEUKAEMIA
     Dosage: 25MG/M2 IV Q 4 WKSX6MOS IV
     Route: 042
     Dates: start: 20070813
  17. FLUDARABINE PHOSPHATE [Suspect]
     Indication: CHRONIC LYMPHOCYTIC LEUKAEMIA
     Dosage: 25MG/M2 IV Q 4 WKSX6MOS IV
     Route: 042
     Dates: start: 20070814
  18. FLUDARABINE PHOSPHATE [Suspect]
     Indication: CHRONIC LYMPHOCYTIC LEUKAEMIA
     Dosage: 25MG/M2 IV Q 4 WKSX6MOS IV
     Route: 042
     Dates: start: 20070815
  19. FLUDARABINE PHOSPHATE [Suspect]
     Indication: CHRONIC LYMPHOCYTIC LEUKAEMIA
     Dosage: 25MG/M2 IV Q 4 WKSX6MOS IV
     Route: 042
     Dates: start: 20070912
  20. FLUDARABINE PHOSPHATE [Suspect]
     Indication: CHRONIC LYMPHOCYTIC LEUKAEMIA
     Dosage: 25MG/M2 IV Q 4 WKSX6MOS IV
     Route: 042
     Dates: start: 20070913
  21. FLUDARABINE PHOSPHATE [Suspect]
     Indication: CHRONIC LYMPHOCYTIC LEUKAEMIA
     Dosage: 25MG/M2 IV Q 4 WKSX6MOS IV
     Route: 042
     Dates: start: 20070914
  22. FLUDARABINE PHOSPHATE [Suspect]
     Indication: CHRONIC LYMPHOCYTIC LEUKAEMIA
     Dosage: 25MG/M2 IV Q 4 WKSX6MOS IV
     Route: 042
     Dates: start: 20071010
  23. FLUDARABINE PHOSPHATE [Suspect]
     Indication: CHRONIC LYMPHOCYTIC LEUKAEMIA
     Dosage: 25MG/M2 IV Q 4 WKSX6MOS IV
     Route: 042
     Dates: start: 20071011
  24. FLUDARABINE PHOSPHATE [Suspect]
     Indication: CHRONIC LYMPHOCYTIC LEUKAEMIA
     Dosage: 25MG/M2 IV Q 4 WKSX6MOS IV
     Route: 042
     Dates: start: 20071012

REACTIONS (2)
  - FEBRILE NEUTROPENIA [None]
  - INFLUENZA LIKE ILLNESS [None]
